FAERS Safety Report 4372346-7 (Version None)
Quarter: 2004Q2

REPORT INFORMATION
  Report Type: 
  Country: None (occurrence: None)
  Receive Date: 20040526
  Receipt Date: 20040520
  Transmission Date: 20050107
  Serious: Yes (Life-Threatening)
  Sender: FDA-Public Use
  Company Number: 200411736GDS

PATIENT
  Sex: Male
  Weight: 76 kg

DRUGS (1)
  1. AVELOX [Suspect]
     Dosage: 400 MG, TOTAL DAILY, INTRAVENOUS
     Route: 042

REACTIONS (1)
  - POLYNEUROPATHY [None]
